FAERS Safety Report 7712300-8 (Version None)
Quarter: 2011Q3

REPORT INFORMATION
  Report Type: 
  Country: None (occurrence: None)
  Receive Date: 20110826
  Receipt Date: 20110823
  Transmission Date: 20111222
  Serious: Yes (Hospitalization, Other)
  Sender: FDA-Public Use
  Company Number: US-PFIZER INC-2011099046

PATIENT
  Sex: Female

DRUGS (16)
  1. PROTONIX [Concomitant]
     Indication: GASTROOESOPHAGEAL REFLUX DISEASE
     Dosage: UNK
     Dates: start: 19990101
  2. LORAZEPAM [Concomitant]
  3. SEROQUEL [Concomitant]
     Indication: DEPRESSION
     Dosage: UNK
     Dates: start: 20070101, end: 20100101
  4. CHANTIX [Suspect]
     Indication: SMOKING CESSATION THERAPY
     Dosage: 0.5 THEN 1MG
     Dates: start: 20070706, end: 20091227
  5. LORAZEPAM [Concomitant]
     Indication: ANXIETY
     Dosage: UNK
     Dates: start: 20040101
  6. HYDROCODONE [Concomitant]
     Indication: ARTHRALGIA
     Dosage: UNK
     Dates: start: 20030101
  7. ZOLPIDEM [Concomitant]
     Indication: INSOMNIA
     Dosage: UNK
     Dates: start: 20070101
  8. HYDROCODONE [Concomitant]
     Indication: BACK PAIN
  9. EFFEXOR XR [Concomitant]
     Indication: PANIC DISORDER
  10. REMERON [Concomitant]
     Indication: DEPRESSION
     Dosage: UNK
     Dates: start: 20040101
  11. REMERON [Concomitant]
  12. EFFEXOR XR [Concomitant]
     Indication: DEPRESSION
     Dosage: UNK
     Dates: start: 20070101, end: 20100101
  13. EFFEXOR XR [Concomitant]
     Indication: ANXIETY
  14. EFFEXOR XR [Concomitant]
  15. METFORMIN [Concomitant]
     Indication: DIABETES MELLITUS
     Dosage: UNK
     Dates: start: 20080101
  16. EFFEXOR XR [Concomitant]

REACTIONS (4)
  - MULTIPLE DRUG OVERDOSE INTENTIONAL [None]
  - ANXIETY [None]
  - DEPRESSION [None]
  - COGNITIVE DISORDER [None]
